FAERS Safety Report 5763471-4 (Version None)
Quarter: 2008Q2

REPORT INFORMATION
  Report Type: 
  Country: None (occurrence: None)
  Receive Date: 20080604
  Receipt Date: 20080604
  Transmission Date: 20081010
  Serious: No
  Sender: FDA-Public Use
  Company Number: None

PATIENT
  Age: 79 Year
  Sex: Male
  Weight: 80.3 kg

DRUGS (2)
  1. WARFARIN SODIUM [Suspect]
     Indication: ATRIAL FIBRILLATION
     Dosage: 3 MG EVERY DAY PO
     Route: 048
     Dates: start: 19990913
  2. CRANBERRY [Suspect]
     Indication: URINARY TRACT INFECTION
     Dates: start: 20071101, end: 20080101

REACTIONS (2)
  - INTERNATIONAL NORMALISED RATIO INCREASED [None]
  - URINARY TRACT INFECTION [None]
